FAERS Safety Report 11656344 (Version 1)
Quarter: 2015Q4

REPORT INFORMATION
  Report Type: Spontaneous
  Country: US (occurrence: US)
  Receive Date: 20151023
  Receipt Date: 20151023
  Transmission Date: 20160304
  Serious: Yes (Other)
  Sender: FDA-Public Use
  Company Number: US-BAUSCH-BL-2015-024234

PATIENT
  Age: 15 Year
  Sex: Male
  Weight: 51.8 kg

DRUGS (2)
  1. BUDESONIDE. [Interacting]
     Active Substance: BUDESONIDE
     Indication: PRODUCT USED FOR UNKNOWN INDICATION
     Dosage: HIGHEST DOSE, 6 MG ON ALTERNATE DAYS
     Route: 048
  2. ITRACONAZOLE. [Suspect]
     Active Substance: ITRACONAZOLE
     Indication: PRODUCT USED FOR UNKNOWN INDICATION
     Route: 065

REACTIONS (2)
  - Cushing^s syndrome [Recovered/Resolved]
  - Drug interaction [Recovered/Resolved]
